FAERS Safety Report 4864313-1 (Version None)
Quarter: 2005Q4

REPORT INFORMATION
  Report Type: 
  Country: None (occurrence: None)
  Receive Date: 20051222
  Receipt Date: 20051005
  Transmission Date: 20060501
  Serious: Yes (Death, Hospitalization)
  Sender: FDA-Public Use
  Company Number: US-MERCK-0510USA05186

PATIENT
  Age: 75 Year
  Sex: Female
  Weight: 100 kg

DRUGS (9)
  1. VIOXX [Suspect]
     Indication: PAIN
     Route: 048
     Dates: end: 20030104
  2. VIOXX [Suspect]
     Indication: BLOOD PRESSURE
     Route: 048
     Dates: end: 20030104
  3. POTASSIUM (UNSPECIFIED) [Concomitant]
     Route: 065
  4. HYDRODIURIL [Concomitant]
     Route: 048
  5. BENADRYL [Concomitant]
     Route: 065
  6. [THERAPY UNSPECIFIED] [Concomitant]
     Route: 065
  7. MOTRIN [Concomitant]
     Route: 065
  8. ULTRAM [Concomitant]
     Route: 065
  9. CELEBREX [Concomitant]
     Route: 065

REACTIONS (7)
  - CARDIAC DISORDER [None]
  - CARDIOVASCULAR DISORDER [None]
  - DEATH [None]
  - INFLUENZA [None]
  - MYOCARDIAL INFARCTION [None]
  - NASOPHARYNGITIS [None]
  - THROMBOSIS [None]
